FAERS Safety Report 7822706-4 (Version None)
Quarter: 2011Q4

REPORT INFORMATION
  Report Type: 
  Country: None (occurrence: None)
  Receive Date: 20111018
  Receipt Date: 20111012
  Transmission Date: 20120403
  Serious: Yes (Other)
  Sender: FDA-Public Use
  Company Number: CH-MERCK-1110USA01761

PATIENT
  Age: 69 Year
  Sex: Male

DRUGS (7)
  1. ASPIRIN [Concomitant]
     Indication: TRANSIENT ISCHAEMIC ATTACK
     Route: 048
  2. JANUMET [Suspect]
     Indication: TYPE 2 DIABETES MELLITUS
     Route: 048
     Dates: start: 20110309
  3. CYANOCOBALAMIN [Concomitant]
     Indication: VITAMIN B12 DEFICIENCY
     Route: 065
  4. METFORMIN [Concomitant]
     Route: 065
     Dates: start: 20110126, end: 20110308
  5. JANUVIA [Suspect]
     Indication: TYPE 2 DIABETES MELLITUS
     Route: 048
     Dates: start: 20110126, end: 20110306
  6. CLOPIDOGREL [Concomitant]
     Route: 048
  7. ALLOPURINOL [Concomitant]
     Route: 048

REACTIONS (1)
  - HYPERAESTHESIA [None]
